FAERS Safety Report 8551248 (Version 3)
Quarter: 2014Q1

REPORT INFORMATION
  Report Type: Spontaneous
  Country: US (occurrence: None)
  Receive Date: 20120327
  Receipt Date: 20130724
  Transmission Date: 20141002
  Serious: Yes (Hospitalization, Other)
  Sender: FDA-Public Use
  Company Number: PHHY2011US29926

PATIENT
  Age: 56 Year
  Sex: Female

DRUGS (11)
  1. GLEEVEC [Suspect]
     Indication: CHRONIC MYELOID LEUKAEMIA
     Route: 048
     Dates: start: 20100819
  2. REGLAN [Concomitant]
  3. DILAUDID [Concomitant]
  4. LOVENOX [Concomitant]
  5. LEVAQUIN [Concomitant]
  6. TENORMIN [Concomitant]
  7. PROTONIX [Concomitant]
  8. TYLENOL (PARACETAMOL) [Concomitant]
  9. AMBIEN [Concomitant]
  10. LORTAB [Concomitant]
  11. ZOFRAN [Concomitant]

REACTIONS (13)
  - Enteritis [None]
  - Diarrhoea [None]
  - Hypercoagulation [None]
  - Hypoacusis [None]
  - Dyspnoea [None]
  - Arthralgia [None]
  - Cough [None]
  - Inflammatory bowel disease [None]
  - Abdominal pain [None]
  - Crohn^s disease [None]
  - Regurgitation [None]
  - Malaise [None]
  - Muscle spasms [None]
